FAERS Safety Report 9248959 (Version 2)
Quarter: 2014Q1

REPORT INFORMATION
  Report Type: Spontaneous
  Country: US (occurrence: None)
  Receive Date: 20130305
  Receipt Date: 20140306
  Transmission Date: 20141002
  Serious: Yes (Hospitalization, Other)
  Sender: FDA-Public Use
  Company Number: 163-21880-12100270

PATIENT
  Age: 68 Year
  Sex: Male
  Weight: 99.3 kg

DRUGS (7)
  1. REVLIMID [Suspect]
     Indication: PLASMA CELL MYELOMA
     Dosage: 25 MG, 21 IN 28 D
     Route: 048
     Dates: start: 20120720
  2. LASIX (FUROSEMIDE) [Concomitant]
  3. ACYCLOVIR (ACICLOVIR) (ACICLOVIR) [Concomitant]
  4. METOPROOL SUCC ER [Concomitant]
  5. CLARITIN (LORATADINE) [Concomitant]
  6. VESICARE (SOLIFENACIN SUCCINATE) [Concomitant]
  7. POTASSIUM CL ER [Concomitant]

REACTIONS (3)
  - Thrombosis [None]
  - Pneumonia [None]
  - Confusional state [None]
